FAERS Safety Report 7041471-4 (Version None)
Quarter: 2010Q4

REPORT INFORMATION
  Report Type: 
  Country: None (occurrence: None)
  Receive Date: 20101013
  Receipt Date: 20100803
  Transmission Date: 20110411
  Serious: No
  Sender: FDA-Public Use
  Company Number: US-ASTRAZENECA-2009SE13633

PATIENT
  Age: 28720 Day
  Sex: Female
  Weight: 55.3 kg

DRUGS (9)
  1. SYMBICORT [Suspect]
     Indication: CHRONIC OBSTRUCTIVE PULMONARY DISEASE
     Dosage: 80/4.5 MCGS 2 PUFFS IN AM AND 2 PUFFS IN PM
     Route: 055
     Dates: start: 20080101, end: 20091201
  2. SYMBICORT [Suspect]
     Route: 055
     Dates: start: 20090312
  3. SYMBICORT [Suspect]
     Dosage: 80/4.5 MCG TWO PUFFS TWICE DAILY
     Route: 055
     Dates: start: 20100617
  4. SYMBICORT [Suspect]
     Route: 055
     Dates: start: 20100707
  5. SYMBICORT [Suspect]
     Dosage: 80/4.5 UG 2 PUFFS BID
     Route: 055
     Dates: start: 20090714, end: 20090802
  6. SYMBICORT [Suspect]
     Dosage: 80/4.5 UG 120 INHALATIONS 2 PUFFS BID
     Route: 055
     Dates: start: 20090802, end: 20090821
  7. SYMBICORT [Suspect]
     Dosage: 80/4.5 UG 120 INHALATIONS 2 PUFFS BID
     Route: 055
     Dates: start: 20090821, end: 20090912
  8. ALBUTEROL [Concomitant]
  9. SPIRIVA [Concomitant]

REACTIONS (4)
  - ASTHENIA [None]
  - DRUG INEFFECTIVE [None]
  - DYSPNOEA [None]
  - MALAISE [None]
